FAERS Safety Report 8183816-8 (Version None)
Quarter: 2012Q1

REPORT INFORMATION
  Report Type: 
  Country: None (occurrence: None)
  Receive Date: 20120305
  Receipt Date: 20120222
  Transmission Date: 20120608
  Serious: Yes (Hospitalization)
  Sender: FDA-Public Use
  Company Number: JP-PFIZER INC-2011208173

PATIENT
  Age: 75 Year
  Sex: Male

DRUGS (7)
  1. ESTRACYT [Suspect]
     Indication: PROSTATE CANCER
     Dosage: 626.8 MG, 1X/DAY
     Route: 048
     Dates: start: 20110601, end: 20110611
  2. ETODOLAC [Concomitant]
     Dosage: 400 MG/DAY
     Route: 048
  3. PURSENNID [Concomitant]
     Dosage: 24 MG, 1X/DAY
     Route: 048
  4. ESTRACYT [Suspect]
     Dosage: 313.4 MG, 1X/DAY
     Route: 048
     Dates: start: 20110612, end: 20110622
  5. MAGMITT [Concomitant]
     Dosage: 990 MG, 1X/DAY
     Route: 048
  6. PROTECADIN [Concomitant]
     Dosage: 20 MG, 1X/DAY
     Route: 048
  7. OXYCONTIN [Concomitant]
     Dosage: 10 MG, 1X/DAY
     Route: 048

REACTIONS (4)
  - MALAISE [None]
  - NAUSEA [None]
  - VOMITING [None]
  - DECREASED APPETITE [None]
